FAERS Safety Report 5719591-3 (Version None)
Quarter: 2008Q2

REPORT INFORMATION
  Report Type: 
  Country: None (occurrence: None)
  Receive Date: 20080428
  Receipt Date: 20080423
  Transmission Date: 20081010
  Serious: Yes (Other)
  Sender: FDA-Public Use
  Company Number: B0504009A

PATIENT
  Age: 59 Year
  Sex: Male
  Weight: 57 kg

DRUGS (9)
  1. HEPSERA [Suspect]
     Indication: HEPATITIS B
     Dosage: 10MG PER DAY
     Route: 048
     Dates: start: 20060816, end: 20071025
  2. ZEFIX [Suspect]
     Indication: HEPATITIS B
     Dosage: 100MG PER DAY
     Route: 048
     Dates: start: 20040414, end: 20071025
  3. ENTECAVIR [Suspect]
     Indication: HEPATITIS B
     Dosage: .5MG PER DAY
     Route: 048
     Dates: start: 20071026
  4. GASTER D [Concomitant]
     Indication: GASTROENTERITIS
     Dosage: 40MG PER DAY
     Route: 048
     Dates: end: 20070719
  5. BIOFERMIN [Concomitant]
     Indication: GASTROENTERITIS
     Dosage: 6G PER DAY
     Route: 048
     Dates: end: 20060913
  6. URSO 250 [Concomitant]
     Indication: HEPATITIS B
     Dosage: 900MG PER DAY
     Route: 048
     Dates: end: 20080124
  7. AMINOLEBAN [Concomitant]
     Indication: HEPATITIS B
     Route: 048
     Dates: end: 20070207
  8. LANSAP [Concomitant]
     Indication: HELICOBACTER INFECTION
     Dosage: 1600MG PER DAY
     Route: 048
     Dates: start: 20070426, end: 20070502
  9. OMEPRAL [Concomitant]
     Indication: GASTRITIS
     Dosage: 10MG PER DAY
     Route: 048
     Dates: start: 20070726, end: 20070829

REACTIONS (3)
  - BLOOD CREATINE PHOSPHOKINASE INCREASED [None]
  - HEPATIC FUNCTION ABNORMAL [None]
  - HYPERLIPIDAEMIA [None]
